FAERS Safety Report 5671737-1 (Version None)
Quarter: 2008Q1

REPORT INFORMATION
  Report Type: 
  Country: None (occurrence: None)
  Receive Date: 20080314
  Receipt Date: 20080303
  Transmission Date: 20080703
  Serious: Yes (Hospitalization)
  Sender: FDA-Public Use
  Company Number: 2008-00728

PATIENT
  Age: 67 Year
  Sex: Female
  Weight: 65.8 kg

DRUGS (16)
  1. VELCADE [Suspect]
     Indication: MULTIPLE MYELOMA
     Dosage: 1.30 MG/M2,INTRAVENOUS
     Route: 042
     Dates: start: 20080125, end: 20080225
  2. DEXAMETHASONE TAB [Suspect]
     Indication: MULTIPLE MYELOMA
     Dosage: 20.00 MG,ORAL
     Route: 048
     Dates: start: 20080125, end: 20080226
  3. SYNTHROID [Concomitant]
  4. NEXIUM [Concomitant]
  5. TOPROL-XL [Concomitant]
  6. BENICAR [Concomitant]
  7. ACTONEL [Concomitant]
  8. ALLEGREA (FEXOFENADINE HYDROCHLORIDE) [Concomitant]
  9. ALLEGRA-D 12 HOUR [Concomitant]
  10. BUMETANIDE [Concomitant]
  11. HYDROCODONE W/ACETAMINOPHEN (PARACETAMOL,HYDROCODONE BITARTRATE) [Concomitant]
  12. XANAX [Concomitant]
  13. SENOKOT [Concomitant]
  14. PHENERGAN HCL [Concomitant]
  15. DURAGESIC-100 [Concomitant]
  16. ACETAMINOPHEN [Concomitant]

REACTIONS (6)
  - ATELECTASIS [None]
  - BACK PAIN [None]
  - CONDITION AGGRAVATED [None]
  - INFLUENZA [None]
  - OEDEMA PERIPHERAL [None]
  - PNEUMONIA [None]
